FAERS Safety Report 6254640-8 (Version None)
Quarter: 2009Q3

REPORT INFORMATION
  Report Type: 
  Country: None (occurrence: None)
  Receive Date: 20090702
  Receipt Date: 20090624
  Transmission Date: 20100115
  Serious: Yes (Life-Threatening)
  Sender: FDA-Public Use
  Company Number: B0575895A

PATIENT
  Sex: Female

DRUGS (5)
  1. PAXIL [Suspect]
     Indication: DEPRESSION
     Dosage: 10MG THREE TIMES PER DAY
     Route: 048
     Dates: start: 20050913, end: 20090515
  2. CONSTAN [Concomitant]
     Indication: ANXIETY
     Dosage: 1.2MG PER DAY
     Route: 048
  3. ANAFRANIL [Concomitant]
     Indication: INSOMNIA
     Dosage: 25MG PER DAY
     Route: 048
  4. ROHYPNOL [Concomitant]
     Indication: INSOMNIA
     Dosage: 2MG PER DAY
     Route: 048
  5. HALCION [Concomitant]
     Indication: INSOMNIA
     Dosage: .25MG PER DAY
     Route: 048

REACTIONS (6)
  - ILL-DEFINED DISORDER [None]
  - INSOMNIA [None]
  - INTENTIONAL SELF-INJURY [None]
  - RESTLESSNESS [None]
  - SELF INJURIOUS BEHAVIOUR [None]
  - SUICIDE ATTEMPT [None]
